FAERS Safety Report 24595001 (Version 1)
Quarter: 2024Q4

REPORT INFORMATION
  Report Type: Spontaneous
  Country: FR (occurrence: FR)
  Receive Date: 20241108
  Receipt Date: 20241108
  Transmission Date: 20250114
  Serious: Yes (Other)
  Sender: AMERICAN REGENT
  Company Number: FR-AMERICAN REGENT INC-2024004157

PATIENT
  Age: 45 Year
  Sex: Female
  Weight: 64 kg

DRUGS (1)
  1. FERINJECT [Suspect]
     Active Substance: FERRIC CARBOXYMALTOSE
     Indication: Anaemia
     Dosage: 1000 MILLIGRAM
     Dates: start: 20241009, end: 20241009

REACTIONS (1)
  - Infusion related reaction [Recovered/Resolved]

NARRATIVE: CASE EVENT DATE: 20241009
